FAERS Safety Report 7943616-8 (Version None)
Quarter: 2011Q4

REPORT INFORMATION
  Report Type: 
  Country: None (occurrence: None)
  Receive Date: 20111128
  Receipt Date: 20111122
  Transmission Date: 20120403
  Serious: Yes (Other)
  Sender: FDA-Public Use
  Company Number: CA-PFIZER INC-2011260882

PATIENT
  Age: 42 Year
  Sex: Female
  Weight: 69.841 kg

DRUGS (2)
  1. VITAMIN TAB [Concomitant]
     Dosage: UNK
  2. IBUPROFEN [Suspect]
     Indication: ARTHRALGIA
     Dosage: 400 MG, AS NEEDED

REACTIONS (5)
  - CHOKING [None]
  - ODYNOPHAGIA [None]
  - DYSPHAGIA [None]
  - THROAT IRRITATION [None]
  - FOREIGN BODY [None]
